FAERS Safety Report 7500899-6 (Version None)
Quarter: 2011Q2

REPORT INFORMATION
  Report Type: 
  Country: None (occurrence: None)
  Receive Date: 20110524
  Receipt Date: 20110519
  Transmission Date: 20111010
  Serious: Yes (Hospitalization)
  Sender: FDA-Public Use
  Company Number: B0721442A

PATIENT
  Sex: Female

DRUGS (1)
  1. CEFUROXIME SODIUM [Suspect]
     Indication: BRONCHOPNEUMONIA
     Dosage: 600MG PER DAY
     Route: 042
     Dates: start: 20110510, end: 20110510

REACTIONS (1)
  - RASH ERYTHEMATOUS [None]
